FAERS Safety Report 5963274-1 (Version None)
Quarter: 2008Q4

REPORT INFORMATION
  Report Type: 
  Country: None (occurrence: None)
  Receive Date: 20081120
  Receipt Date: 20081110
  Transmission Date: 20090506
  Serious: Yes (Other)
  Sender: FDA-Public Use
  Company Number: CHPA2008US19473

PATIENT
  Age: 64 Year
  Sex: Female

DRUGS (2)
  1. GAS-X MAXIMUM STRENGTH SOFTGELS (NCH) (SIMETHICONE) SOFT GELATIN CAPSU [Suspect]
     Indication: FLATULENCE
     Dosage: QD, ORAL
     Route: 048
     Dates: start: 20061001, end: 20080101
  2. GAS-X EXTRA STRENGTH SOFTGELS (NCH) (SIMETHICONE) SOFT GELATIN CAPSULE [Suspect]
     Indication: FLATULENCE
     Dosage: 250 MG, BID, ORAL
     Route: 048
     Dates: start: 20080101

REACTIONS (2)
  - DRUG INEFFECTIVE [None]
  - IRRITABLE BOWEL SYNDROME [None]
